FAERS Safety Report 4471405-8 (Version None)
Quarter: 2004Q4

REPORT INFORMATION
  Report Type: 
  Country: None (occurrence: None)
  Receive Date: 20041012
  Receipt Date: 20041012
  Transmission Date: 20050328
  Serious: Yes (Other)
  Sender: FDA-Public Use
  Company Number: None

PATIENT
  Age: 62 Year
  Sex: Male
  Weight: 96.6162 kg

DRUGS (2)
  1. ROSUVASTATIN [Suspect]
     Dosage: 10MG PO QD
     Route: 048
     Dates: start: 20040131
  2. ROSUVASTATIN [Suspect]
     Dosage: 10MG PO QD
     Route: 048
     Dates: start: 20041215

REACTIONS (2)
  - BLOOD CREATINE PHOSPHOKINASE INCREASED [None]
  - MYALGIA [None]
